FAERS Safety Report 5320041-X (Version None)
Quarter: 2007Q1

REPORT INFORMATION
  Report Type: 
  Country: None (occurrence: None)
  Receive Date: 20070215
  Receipt Date: 20060425
  Transmission Date: 20070707
  Serious: Yes (Other)
  Sender: FDA-Public Use
  Company Number: MC200600288

PATIENT
  Age: 75 Year
  Sex: Male
  Weight: 119 kg

DRUGS (3)
  1. ANGIOMAX [Suspect]
     Dosage: SEE IMAGE
     Route: 042
     Dates: start: 20060424, end: 20060424
  2. ANGIOMAX [Suspect]
     Dosage: SEE IMAGE
     Route: 042
     Dates: start: 20060424
  3. HEPARIN [Suspect]
     Dates: start: 20060424

REACTIONS (1)
  - OPERATIVE HAEMORRHAGE [None]
